FAERS Safety Report 23895499 (Version 1)
Quarter: 2024Q2

REPORT INFORMATION
  Report Type: Spontaneous
  Country: GB (occurrence: GB)
  Receive Date: 20240524
  Receipt Date: 20240524
  Transmission Date: 20240716
  Serious: Yes (Hospitalization, Other)
  Sender: FDA-Public Use
  Company Number: GB-RANBAXY-2010RR-33799

PATIENT
  Age: 57 Year
  Sex: Female

DRUGS (6)
  1. OMEPRAZOLE [Suspect]
     Active Substance: DONEPEZIL HYDROCHLORIDE\OMEPRAZOLE\OMEPRAZOLE MAGNESIUM
     Indication: Gastrooesophageal reflux disease
     Dosage: UNK
     Route: 065
  2. PANTOPRAZOLE [Suspect]
     Active Substance: PANTOPRAZOLE
     Indication: Gastrooesophageal reflux disease
     Dosage: 40 MG, QD
     Route: 065
  3. BENDROFLUMETHIAZIDE [Concomitant]
     Active Substance: BENDROFLUMETHIAZIDE
     Indication: Hypertension
     Route: 065
  4. DOMPERIDONE [Concomitant]
     Active Substance: DOMPERIDONE
     Indication: Gastrooesophageal reflux disease
     Route: 065
  5. MAGNESIUM [Concomitant]
     Active Substance: MAGNESIUM
     Indication: Hypomagnesaemia
     Dosage: 12 MMOL, UNK
     Route: 048
  6. RANITIDINE [Concomitant]
     Active Substance: RANITIDINE
     Indication: Gastrooesophageal reflux disease
     Dosage: UNK
     Route: 065

REACTIONS (15)
  - Hypocalcaemia [Recovering/Resolving]
  - Hypomagnesaemia [Recovered/Resolved]
  - Muscle spasms [Recovered/Resolved]
  - Dizziness [Recovered/Resolved]
  - Dyspepsia [Unknown]
  - Emotional distress [Unknown]
  - Fatigue [Unknown]
  - Lethargy [Unknown]
  - Nausea [Recovered/Resolved]
  - Paraesthesia [Recovered/Resolved]
  - Syncope [Unknown]
  - Paraesthesia [Unknown]
  - Balance disorder [Unknown]
  - Vomiting [Recovered/Resolved]
  - Asthenia [Recovered/Resolved]

NARRATIVE: CASE EVENT DATE: 20031101
